FAERS Safety Report 16815545 (Version 1)
Quarter: 2019Q3

REPORT INFORMATION
  Report Type: Report from Study
  Country: None (occurrence: US)
  Receive Date: 20190917
  Receipt Date: 20190917
  Transmission Date: 20191005
  Serious: Yes (Hospitalization, Other)
  Sender: FDA-Public Use
  Company Number: US-ABBVIE-19K-163-2924078-00

PATIENT
  Sex: Female

DRUGS (1)
  1. VENCLEXTA [Suspect]
     Active Substance: VENETOCLAX
     Indication: CHRONIC LYMPHOCYTIC LEUKAEMIA
     Route: 048
     Dates: end: 201805

REACTIONS (4)
  - Lymphocyte count increased [Not Recovered/Not Resolved]
  - Graft versus host disease [Unknown]
  - Chronic lymphocytic leukaemia [Not Recovered/Not Resolved]
  - Stem cell transplant [Unknown]
